FAERS Safety Report 24157338 (Version 2)
Quarter: 2024Q3

REPORT INFORMATION
  Report Type: Spontaneous
  Country: US (occurrence: US)
  Receive Date: 20240731
  Receipt Date: 20240805
  Transmission Date: 20241017
  Serious: No
  Sender: SANOFI AVENTIS
  Company Number: US-SA-SAC20240725000703

PATIENT
  Age: 7 Year
  Sex: Male

DRUGS (1)
  1. DUPIXENT [Suspect]
     Active Substance: DUPILUMAB
     Indication: Eosinophilic oesophagitis
     Dosage: 200 MG, QOW
     Route: 058

REACTIONS (7)
  - Injection site mass [Unknown]
  - Injection site haemorrhage [Unknown]
  - Dry eye [Unknown]
  - Injection site swelling [Unknown]
  - Injection site induration [Unknown]
  - Injection site pain [Unknown]
  - Product administered to patient of inappropriate age [Unknown]
